FAERS Safety Report 12633420 (Version 3)
Quarter: 2016Q3

REPORT INFORMATION
  Report Type: Spontaneous
  Country: US (occurrence: US)
  Receive Date: 20160808
  Receipt Date: 20160808
  Transmission Date: 20161109
  Serious: No
  Sender: FDA-Public Use
  Company Number: US-BEH-2016060744

PATIENT
  Age: 67 Year
  Sex: Female
  Weight: 56 kg

DRUGS (26)
  1. NITROSTAT [Concomitant]
     Active Substance: NITROGLYCERIN
  2. FLONASE [Concomitant]
     Active Substance: FLUTICASONE PROPIONATE
  3. LOSARTAN. [Concomitant]
     Active Substance: LOSARTAN
  4. HORSE CHESTNUT [Concomitant]
     Active Substance: HORSE CHESTNUT
  5. ESTRACE [Concomitant]
     Active Substance: ESTRADIOL
  6. BIOTIN [Concomitant]
     Active Substance: BIOTIN
  7. LMX [Concomitant]
     Active Substance: LIDOCAINE
  8. HIZENTRA [Suspect]
     Active Substance: HUMAN IMMUNOGLOBULIN G
     Indication: IMMUNODEFICIENCY COMMON VARIABLE
     Route: 058
     Dates: start: 20130821
  9. DOXYCYCLINE. [Concomitant]
     Active Substance: DOXYCYCLINE
  10. HYDROCHLORTHIAZIDE [Concomitant]
     Active Substance: HYDROCHLOROTHIAZIDE
  11. DOXYLAMINE [Concomitant]
     Active Substance: DOXYLAMINE
  12. ACETAMINOPHEN. [Concomitant]
     Active Substance: ACETAMINOPHEN
  13. DIPHENHYDRAMINE. [Concomitant]
     Active Substance: DIPHENHYDRAMINE
  14. TEMAZEPAM. [Concomitant]
     Active Substance: TEMAZEPAM
  15. ASTEPRO [Concomitant]
     Active Substance: AZELASTINE HYDROCHLORIDE
  16. SYMBICORT [Concomitant]
     Active Substance: BUDESONIDE\FORMOTEROL FUMARATE DIHYDRATE
  17. ASPIRIN. [Concomitant]
     Active Substance: ASPIRIN
  18. EPIPEN [Concomitant]
     Active Substance: EPINEPHRINE
  19. TESSALON [Concomitant]
     Active Substance: BENZONATATE
  20. ASTRAGALUS [Concomitant]
  21. LIDOCAINE/PRILOCAINE [Concomitant]
     Active Substance: LIDOCAINE\PRILOCAINE
  22. VERAPAMIL [Concomitant]
     Active Substance: VERAPAMIL HYDROCHLORIDE
  23. CLOTRIMAZOLE. [Concomitant]
     Active Substance: CLOTRIMAZOLE
  24. IMITREX [Concomitant]
     Active Substance: SUMATRIPTAN SUCCINATE
  25. CALCIUM [Concomitant]
     Active Substance: CALCIUM
  26. TRIAMTERENE. [Concomitant]
     Active Substance: TRIAMTERENE

REACTIONS (1)
  - Urinary tract infection [Unknown]

NARRATIVE: CASE EVENT DATE: 20151214
